FAERS Safety Report 23837144 (Version 2)
Quarter: 2024Q2

REPORT INFORMATION
  Report Type: Spontaneous
  Country: US (occurrence: US)
  Receive Date: 20240509
  Receipt Date: 20240525
  Transmission Date: 20240715
  Serious: Yes (Hospitalization)
  Sender: FDA-Public Use
  Company Number: US-TEVA-VS-3193778

PATIENT
  Age: 90 Year
  Sex: Male

DRUGS (3)
  1. HYDROCORTISONE [Suspect]
     Active Substance: HYDROCORTISONE
     Indication: Addison^s disease
     Dosage: TIME INTERVAL: 0.33333333 DAYS: THREE TIMES DAILY
     Route: 065
  2. METHYLPREDNISOLONE [Suspect]
     Active Substance: METHYLPREDNISOLONE
     Indication: Addison^s disease
     Dosage: A DOSE
     Route: 042
  3. FLUDROCORTISONE [Suspect]
     Active Substance: FLUDROCORTISONE
     Indication: Addison^s disease
     Route: 065

REACTIONS (6)
  - Drug ineffective [Unknown]
  - Pneumoretroperitoneum [Recovered/Resolved]
  - Diverticular perforation [Recovered/Resolved]
  - Emphysema [Recovered/Resolved]
  - Pneumomediastinum [Recovered/Resolved]
  - Abdominal abscess [Unknown]
